FAERS Safety Report 7110107-6 (Version None)
Quarter: 2010Q4

REPORT INFORMATION
  Report Type: 
  Country: None (occurrence: None)
  Receive Date: 20101112
  Receipt Date: 20101027
  Transmission Date: 20110411
  Serious: Yes (Hospitalization)
  Sender: FDA-Public Use
  Company Number: 1-17293588

PATIENT
  Age: 55 Year
  Sex: Female

DRUGS (12)
  1. QUININE SULFATE [Suspect]
     Indication: MUSCLE SPASMS
     Dosage: AS NEEDED, ORAL
     Route: 048
     Dates: start: 20011103, end: 20020101
  2. LOTENSIN [Concomitant]
  3. K-DUR [Concomitant]
  4. PREMARIN [Concomitant]
  5. ACIPHEX [Concomitant]
  6. BUMEX [Concomitant]
  7. CELEBREX [Concomitant]
  8. VICODIN [Concomitant]
  9. MULTI-VITAMIN [Concomitant]
  10. ANDREW LESSMAN S LEG VITAMIN [Concomitant]
  11. ANDREW LESSMAN'S HAIR AND NAIL SUPPLEMENT [Concomitant]
  12. GLUCOSAMINNE [Concomitant]

REACTIONS (13)
  - ARTHRITIS [None]
  - BLOOD POTASSIUM DECREASED [None]
  - COAGULOPATHY [None]
  - DRUG HYPERSENSITIVITY [None]
  - HAEMORRHAGIC DISORDER [None]
  - HYPERTENSION [None]
  - MENOPAUSAL SYMPTOMS [None]
  - MULTIPLE INJURIES [None]
  - OEDEMA [None]
  - PAIN [None]
  - THROMBOCYTOPENIA [None]
  - THROMBOCYTOPENIC PURPURA [None]
  - UNEVALUABLE EVENT [None]
